FAERS Safety Report 6636139-X (Version None)
Quarter: 2010Q1

REPORT INFORMATION
  Report Type: 
  Country: None (occurrence: None)
  Receive Date: 20100316
  Receipt Date: 20100303
  Transmission Date: 20100710
  Serious: Yes (Death, Other)
  Sender: FDA-Public Use
  Company Number: GB-SANOFI-AVENTIS-2010SA014575

PATIENT
  Age: 51 Year
  Sex: Female

DRUGS (15)
  1. FLUDARABINE PHOSPHATE [Suspect]
     Route: 048
  2. FLUDARABINE PHOSPHATE [Suspect]
     Indication: ALLOGENIC BONE MARROW TRANSPLANTATION THERAPY
     Route: 048
  3. CYTARABINE [Suspect]
     Route: 065
  4. CYTARABINE [Suspect]
     Indication: ALLOGENIC BONE MARROW TRANSPLANTATION THERAPY
     Route: 065
  5. GRANULOCYTE COLONY STIMULATING FACTOR [Suspect]
     Route: 065
  6. GRANULOCYTE COLONY STIMULATING FACTOR [Suspect]
     Indication: ALLOGENIC BONE MARROW TRANSPLANTATION THERAPY
     Route: 065
  7. IDARUBICIN HCL [Suspect]
     Route: 065
  8. IDARUBICIN HCL [Suspect]
     Indication: ALLOGENIC BONE MARROW TRANSPLANTATION THERAPY
     Route: 065
  9. DAUNORUBICIN HCL [Concomitant]
  10. ETOPOSIDE [Concomitant]
  11. BLOOD CELLS, PACKED HUMAN [Concomitant]
     Route: 042
  12. PLATELETS [Concomitant]
     Indication: THROMBOCYTOPENIA
     Route: 042
  13. CYCLOPHOSPHAMIDE [Concomitant]
  14. CYCLOPHOSPHAMIDE [Concomitant]
     Indication: ALLOGENIC BONE MARROW TRANSPLANTATION THERAPY
  15. CYTARABINE [Concomitant]

REACTIONS (9)
  - AUTOIMMUNE THROMBOCYTOPENIA [None]
  - CYSTITIS HAEMORRHAGIC [None]
  - ECCHYMOSIS [None]
  - FUNGAL INFECTION [None]
  - HAEMORRHAGE [None]
  - PETECHIAE [None]
  - RECTAL HAEMORRHAGE [None]
  - RESPIRATORY FAILURE [None]
  - THROMBOCYTOPENIA [None]
